FAERS Safety Report 6510206-3 (Version None)
Quarter: 2009Q4

REPORT INFORMATION
  Report Type: 
  Country: None (occurrence: None)
  Receive Date: 20091221
  Receipt Date: 20091221
  Transmission Date: 20100525
  Serious: Yes (Life-Threatening)
  Sender: FDA-Public Use
  Company Number: None

PATIENT
  Age: 67 Year
  Sex: Female
  Weight: 61.2356 kg

DRUGS (1)
  1. LAMOTRIGINE [Suspect]
     Indication: ENCEPHALITIS
     Dosage: 25MG 2X PER DAY PO
     Route: 048

REACTIONS (2)
  - DEPRESSION [None]
  - PRODUCT SUBSTITUTION ISSUE [None]
